FAERS Safety Report 8587212-0 (Version None)
Quarter: 2012Q3

REPORT INFORMATION
  Report Type: 
  Country: None (occurrence: None)
  Receive Date: 20120810
  Receipt Date: 20110804
  Transmission Date: 20120928
  Serious: No
  Sender: FDA-Public Use
  Company Number: US-ASTRAZENECA-2011SE42298

PATIENT
  Age: 48 Year
  Sex: Female
  Weight: 70.3 kg

DRUGS (2)
  1. BONIVA [Concomitant]
     Indication: OSTEOPENIA
  2. ARIMIDEX [Suspect]
     Indication: BREAST CANCER
     Route: 048
     Dates: start: 20060329

REACTIONS (4)
  - ABDOMINAL PAIN UPPER [None]
  - FOREIGN BODY [None]
  - DRY MOUTH [None]
  - DRY EYE [None]
